FAERS Safety Report 8079959-X (Version None)
Quarter: 2012Q1

REPORT INFORMATION
  Report Type: 
  Country: None (occurrence: None)
  Receive Date: 20120128
  Receipt Date: 20110802
  Transmission Date: 20120608
  Serious: No
  Sender: FDA-Public Use
  Company Number: US-ABBOTT-11P-163-0843606-00

PATIENT
  Sex: Female

DRUGS (16)
  1. HUMIRA [Suspect]
     Dates: start: 20110718
  2. PENTASA [Concomitant]
     Indication: CROHN'S DISEASE
     Dosage: 12 TABS DAILY
  3. CALCIUM GLUCONATE [Concomitant]
     Indication: PRODUCT USED FOR UNKNOWN INDICATION
     Dosage: DAILY
  4. ASPIRIN [Concomitant]
     Indication: PRODUCT USED FOR UNKNOWN INDICATION
  5. ATENOLOL [Concomitant]
     Indication: CARDIAC DISORDER
  6. OMEPRAZOLE [Concomitant]
     Indication: PHARYNGEAL DISORDER
  7. SIMVASTATIN [Concomitant]
     Indication: BLOOD CHOLESTEROL INCREASED
  8. VITAMIN B COMPLEX CAP [Concomitant]
     Indication: PRODUCT USED FOR UNKNOWN INDICATION
     Dosage: DAILY
  9. HUMIRA [Suspect]
     Dates: end: 20110601
  10. MULTI-VITAMINS [Concomitant]
     Indication: PRODUCT USED FOR UNKNOWN INDICATION
     Dosage: DAILY
  11. VIT C [Concomitant]
     Indication: PRODUCT USED FOR UNKNOWN INDICATION
     Dosage: DAILY
  12. PROBIOTICS [Concomitant]
     Indication: PRODUCT USED FOR UNKNOWN INDICATION
     Dosage: DAILY
  13. VITAMIN D [Concomitant]
     Indication: PRODUCT USED FOR UNKNOWN INDICATION
     Dosage: DAILY
  14. NIACIN [Concomitant]
     Indication: SUPPLEMENTATION THERAPY
     Dosage: DAILY
  15. HUMIRA [Suspect]
     Indication: CROHN'S DISEASE
     Dates: start: 20070401, end: 20090101
  16. SYNTHROID [Concomitant]
     Indication: THYROIDECTOMY

REACTIONS (4)
  - LACERATION [None]
  - DIVERTICULITIS [None]
  - ARTHROPOD BITE [None]
  - ABDOMINAL PAIN UPPER [None]
